FAERS Safety Report 5190601-8 (Version None)
Quarter: 2006Q4

REPORT INFORMATION
  Report Type: 
  Country: None (occurrence: None)
  Receive Date: 20061222
  Receipt Date: 20060911
  Transmission Date: 20070319
  Serious: No
  Sender: FDA-Public Use
  Company Number: US-BRISTOL-MYERS SQUIBB COMPANY-13506811

PATIENT
  Age: 59 Year
  Sex: Female
  Weight: 87 kg

DRUGS (1)
  1. ORENCIA [Suspect]
     Indication: RHEUMATOID ARTHRITIS
     Route: 042
     Dates: start: 20060824, end: 20060905

REACTIONS (3)
  - NAUSEA [None]
  - SINUSITIS [None]
  - VOMITING [None]
